FAERS Safety Report 6586954-6 (Version None)
Quarter: 2010Q1

REPORT INFORMATION
  Report Type: 
  Country: None (occurrence: None)
  Receive Date: 20100217
  Receipt Date: 20090403
  Transmission Date: 20100710
  Serious: No
  Sender: FDA-Public Use
  Company Number: US-ALLERGAN-0904632US

PATIENT
  Age: 59 Year
  Sex: Female

DRUGS (4)
  1. BOTOX COSMETIC [Suspect]
     Indication: SKIN WRINKLING
     Dosage: 55 UNITS, SINGLE
     Route: 030
     Dates: start: 20090320, end: 20090320
  2. TAMOXIFEN CITRATE [Concomitant]
  3. LEXAPRO [Concomitant]
  4. ADDERALL 30 [Concomitant]

REACTIONS (1)
  - EYELID PTOSIS [None]
